FAERS Safety Report 17718518 (Version 1)
Quarter: 2020Q2

REPORT INFORMATION
  Report Type: Spontaneous
  Country: US (occurrence: US)
  Receive Date: 20200428
  Receipt Date: 20200428
  Transmission Date: 20200714
  Serious: Yes (Life-Threatening, Hospitalization)
  Sender: FDA-Public Use
  Company Number: US-JNJFOC-20200429040

PATIENT
  Age: 53 Year
  Sex: Male
  Weight: 36.77 kg

DRUGS (12)
  1. XARELTO [Suspect]
     Active Substance: RIVAROXABAN
     Indication: CEREBROVASCULAR ACCIDENT PROPHYLAXIS
  2. EPINEPHRINE. [Concomitant]
     Active Substance: EPINEPHRINE
  3. DOBUTAMINE [Concomitant]
     Active Substance: DOBUTAMINE HYDROCHLORIDE
  4. LACTULOSE. [Concomitant]
     Active Substance: LACTULOSE
  5. DENATONIUM [Concomitant]
  6. MEROPENEM. [Concomitant]
     Active Substance: MEROPENEM
  7. XARELTO [Suspect]
     Active Substance: RIVAROXABAN
     Indication: ATRIAL FIBRILLATION
     Route: 048
  8. VERSED [Concomitant]
     Active Substance: MIDAZOLAM HYDROCHLORIDE
  9. PROTONIX                           /00661201/ [Concomitant]
     Active Substance: OMEPRAZOLE
     Route: 042
  10. MINOCYCLINE [Concomitant]
     Active Substance: MINOCYCLINE HYDROCHLORIDE
  11. ALBUTEROL                          /00139501/ [Concomitant]
     Active Substance: ALBUTEROL
  12. FENTANYL. [Concomitant]
     Active Substance: FENTANYL

REACTIONS (3)
  - Coronavirus infection [Unknown]
  - Dependence on respirator [Unknown]
  - Acute kidney injury [Unknown]

NARRATIVE: CASE EVENT DATE: 20200404
